FAERS Safety Report 20831539 (Version 2)
Quarter: 2022Q3

REPORT INFORMATION
  Report Type: Report from Study
  Country: GB (occurrence: GB)
  Receive Date: 20220516
  Receipt Date: 20220825
  Transmission Date: 20221027
  Serious: Yes (Other)
  Sender: FDA-Public Use
  Company Number: GB-NOVARTISPH-NVSC2022GB106983

PATIENT
  Sex: Female

DRUGS (2)
  1. KESIMPTA [Suspect]
     Active Substance: OFATUMUMAB
     Indication: Multiple sclerosis
     Dosage: 20 MG, QW (MOVES TO MONTHLY AFTER FIRST MONTH)
     Route: 058
     Dates: start: 20220428
  2. NORETHINDRONE [Concomitant]
     Active Substance: NORETHINDRONE
     Indication: Product used for unknown indication
     Dosage: UNK (FOR ABOUT 10 YEARS)
     Route: 065

REACTIONS (4)
  - Intermenstrual bleeding [Unknown]
  - Illness [Unknown]
  - Influenza like illness [Unknown]
  - Injection site pruritus [Unknown]
